FAERS Safety Report 5554096-4 (Version None)
Quarter: 2007Q4

REPORT INFORMATION
  Report Type: 
  Country: None (occurrence: None)
  Receive Date: 20071211
  Receipt Date: 20071126
  Transmission Date: 20080405
  Serious: Yes (Other)
  Sender: FDA-Public Use
  Company Number: 2007US002879

PATIENT
  Age: 44 Year
  Sex: Female
  Weight: 69.4 kg

DRUGS (1)
  1. AMEVIVE [Suspect]
     Indication: PSORIASIS
     Dosage: 15 MG, WEEKLY, INTRAMUSCULAR
     Route: 030
     Dates: start: 20030923, end: 20060117

REACTIONS (2)
  - CERVICAL POLYP [None]
  - UTERINE POLYP [None]
